FAERS Safety Report 9370380 (Version 1)
Quarter: 2013Q2

REPORT INFORMATION
  Report Type: Other
  Country: GB (occurrence: GB)
  Receive Date: 20130626
  Receipt Date: 20130626
  Transmission Date: 20140414
  Serious: Yes (Other)
  Sender: FDA-Public Use
  Company Number: GB-WATSON-2013-10999

PATIENT
  Age: 48 Year
  Sex: Female

DRUGS (3)
  1. CLARITHROMYCIN (UNKNOWN) [Suspect]
     Indication: PNEUMONIA
     Dosage: DAILY
     Route: 042
     Dates: start: 20130527, end: 20130527
  2. CLARITHROMYCIN (UNKNOWN) [Suspect]
     Dosage: 500 MG, BID
     Route: 048
     Dates: start: 20130528, end: 20130529
  3. DILTIAZEM HYDROCHLORIDE [Concomitant]
     Indication: PRODUCT USED FOR UNKNOWN INDICATION
     Dosage: UNK
     Route: 065

REACTIONS (11)
  - Abnormal dreams [Recovered/Resolved]
  - Thinking abnormal [Recovered/Resolved]
  - Feeling abnormal [Recovered/Resolved]
  - Eye disorder [Recovered/Resolved]
  - Motion sickness [Recovered/Resolved]
  - Memory impairment [Recovered/Resolved]
  - Confusional state [Recovered/Resolved]
  - Mania [Recovered/Resolved]
  - Hallucination [Recovered/Resolved]
  - Accidental overdose [Unknown]
  - Photopsia [Recovered/Resolved]
